FAERS Safety Report 4342574-5 (Version None)
Quarter: 2004Q1

REPORT INFORMATION
  Report Type: 
  Country: None (occurrence: None)
  Receive Date: 20040213
  Receipt Date: 20031128
  Transmission Date: 20041129
  Serious: Yes (Hospitalization)
  Sender: FDA-Public Use
  Company Number: 353145

PATIENT
  Age: 53 Year
  Sex: Male

DRUGS (2)
  1. PEGASYS [Suspect]
     Indication: HEPATITIS C
     Dosage: 180 MCG 1 PER WEEK SUBCUTANEOUS
     Route: 058
     Dates: start: 20031031
  2. COPEGUS [Suspect]
     Indication: HEPATITIS C
     Dosage: ORAL
     Route: 048
     Dates: start: 20031031

REACTIONS (6)
  - CELLULITIS [None]
  - FACIAL PAIN [None]
  - NASAL DISCOMFORT [None]
  - PYREXIA [None]
  - RHINORRHOEA [None]
  - SWELLING [None]
